FAERS Safety Report 5264267-2 (Version None)
Quarter: 2007Q1

REPORT INFORMATION
  Report Type: 
  Country: None (occurrence: None)
  Receive Date: 20070313
  Receipt Date: 20070206
  Transmission Date: 20070707
  Serious: Yes (Other)
  Sender: FDA-Public Use
  Company Number: US-PFIZER INC-2007018127

PATIENT
  Age: 83 Year
  Sex: Female

DRUGS (1)
  1. LYRICA [Suspect]
     Indication: HEADACHE
     Dates: start: 20070105, end: 20070108

REACTIONS (9)
  - BALANCE DISORDER [None]
  - CONFUSIONAL STATE [None]
  - DISORIENTATION [None]
  - DRUG INEFFECTIVE FOR UNAPPROVED INDICATION [None]
  - FEAR OF FALLING [None]
  - FEELING ABNORMAL [None]
  - SEDATION [None]
  - SOMNOLENCE [None]
  - THINKING ABNORMAL [None]
